FAERS Safety Report 15601846 (Version 2)
Quarter: 2019Q1

REPORT INFORMATION
  Report Type: Spontaneous
  Country: US (occurrence: US)
  Receive Date: 20181109
  Receipt Date: 20190201
  Transmission Date: 20190417
  Serious: Yes (Other)
  Sender: FDA-Public Use
  Company Number: US-GLAXOSMITHKLINE-US2018203244

PATIENT
  Sex: Female

DRUGS (1)
  1. FLONASE [Suspect]
     Active Substance: FLUTICASONE PROPIONATE
     Indication: HYPERSENSITIVITY
     Dosage: FOUR SPRAYS NIGHTLY, 2 SPRAYS PER NOSTRIL
     Dates: end: 20181102

REACTIONS (7)
  - Renal failure [Unknown]
  - Renal atrophy [Unknown]
  - Peripheral swelling [Unknown]
  - Blood uric acid abnormal [Unknown]
  - Joint swelling [Unknown]
  - Renal impairment [Unknown]
  - Incorrect product administration duration [Unknown]
